FAERS Safety Report 18310784 (Version 1)
Quarter: 2020Q3

REPORT INFORMATION
  Report Type: Spontaneous
  Country: US (occurrence: US)
  Receive Date: 20200924
  Receipt Date: 20200924
  Transmission Date: 20201103
  Serious: No
  Sender: FDA-Public Use
  Company Number: None

PATIENT
  Age: 82 Year
  Sex: Male

DRUGS (1)
  1. ARGATROBAN (ARGATROBAN 1MG/ML/NACL 0.9% INJ, BAG, 250ML) [Suspect]
     Active Substance: ARGATROBAN
     Route: 042

REACTIONS (1)
  - Anaemia [None]

NARRATIVE: CASE EVENT DATE: 20190103
